FAERS Safety Report 7157307-7 (Version None)
Quarter: 2010Q4

REPORT INFORMATION
  Report Type: 
  Country: None (occurrence: None)
  Receive Date: 20101214
  Receipt Date: 20101124
  Transmission Date: 20110411
  Serious: No
  Sender: FDA-Public Use
  Company Number: US-PFIZER INC-US-WYE-H18199810

PATIENT
  Age: 76 Year
  Sex: Female

DRUGS (4)
  1. ADVIL [Suspect]
     Dosage: TWO CAPLETS 3X DAILY FOR 2 AND A HALF DAYS ON ADVISE OF HER PHYSICIAN
     Route: 048
     Dates: start: 20100930, end: 20101003
  2. ADVIL [Suspect]
     Dosage: USED THE PRODUCT AGAIN THIS WEEK AND IT WORKED PERFECTLY
     Route: 048
     Dates: start: 20101008
  3. CHOLESTEROL- AND TRIGLYCERIDE REDUCERS [Concomitant]
  4. VITAMINS NOS [Concomitant]

REACTIONS (1)
  - DRUG INEFFECTIVE [None]
